FAERS Safety Report 8264349-7 (Version None)
Quarter: 2012Q2

REPORT INFORMATION
  Report Type: 
  Country: None (occurrence: None)
  Receive Date: 20120406
  Receipt Date: 20120330
  Transmission Date: 20120825
  Serious: No
  Sender: FDA-Public Use
  Company Number: US-PFIZER INC-2012083054

PATIENT
  Sex: Female

DRUGS (2)
  1. GABAPENTIN [Concomitant]
  2. VENLAFAXINE HCL [Suspect]
     Dosage: 400 MG

REACTIONS (3)
  - BALANCE DISORDER [None]
  - INSOMNIA [None]
  - GAIT DISTURBANCE [None]
